FAERS Safety Report 15796682 (Version 1)
Quarter: 2019Q1

REPORT INFORMATION
  Report Type: Report from Study
  Country: FR (occurrence: FR)
  Receive Date: 20190108
  Receipt Date: 20190108
  Transmission Date: 20190417
  Serious: Yes (Other)
  Sender: FDA-Public Use
  Company Number: FR-ROCHE-2239630

PATIENT

DRUGS (5)
  1. RIBAVIRIN. [Suspect]
     Active Substance: RIBAVIRIN
     Indication: HEPATITIS C
     Route: 065
  2. SOFOSBUVIR [Suspect]
     Active Substance: SOFOSBUVIR
     Indication: HEPATITIS C
     Route: 065
  3. PEG-INTERFERON ALFA 2A [Suspect]
     Active Substance: PEGINTERFERON ALFA-2A
     Indication: HEPATITIS C
     Route: 065
  4. TELAPREVIR [Suspect]
     Active Substance: TELAPREVIR
     Indication: HEPATITIS C
     Route: 065
  5. BOCEPREVIR [Suspect]
     Active Substance: BOCEPREVIR
     Indication: HEPATITIS C
     Route: 065

REACTIONS (9)
  - Angiopathy [Unknown]
  - Hepatic encephalopathy [Unknown]
  - Bacterial infection [Unknown]
  - Hepatic failure [Unknown]
  - Ascites [Unknown]
  - Cardiovascular disorder [Unknown]
  - Gastrointestinal haemorrhage [Unknown]
  - Hepatocellular carcinoma [Unknown]
  - Neoplasm malignant [Unknown]
